FAERS Safety Report 8714670 (Version 2)
Quarter: 2012Q4

REPORT INFORMATION
  Report Type: 
  Country: GB (occurrence: GB)
  Receive Date: 20120809
  Receipt Date: 20120910
  Transmission Date: 20130627
  Serious: Yes (Death)
  Sender: FDA-Public Use
  Company Number: PHFR2012GB004373

PATIENT
  Age: 56 Year
  Sex: Male

DRUGS (3)
  1. CLOZARIL [Suspect]
     Indication: SCHIZOPHRENIA
     Dosage: 300 mg, UNK
     Route: 048
     Dates: start: 20030128
  2. ABILIFY [Concomitant]
     Dosage: 10 mg, UNK
     Route: 048
  3. PAROXETINE [Concomitant]
     Dosage: 20 mg, UNK
     Route: 048

REACTIONS (1)
  - Intraventricular haemorrhage [Fatal]
